FAERS Safety Report 6951567-0 (Version None)
Quarter: 2010Q3

REPORT INFORMATION
  Report Type: 
  Country: None (occurrence: None)
  Receive Date: 20100828
  Receipt Date: 20100326
  Transmission Date: 20110219
  Serious: No
  Sender: FDA-Public Use
  Company Number: US-ABBOTT-10P-163-0635833-00

PATIENT
  Sex: Female
  Weight: 63.106 kg

DRUGS (3)
  1. NIASPAN [Suspect]
     Indication: BLOOD CHOLESTEROL INCREASED
     Dates: start: 20100317
  2. TRICOR [Concomitant]
     Indication: BLOOD TRIGLYCERIDES INCREASED
  3. ALENDRONATE SODIUM [Concomitant]
     Indication: BONE DENSITY DECREASED

REACTIONS (5)
  - ERYTHEMA [None]
  - FEELING HOT [None]
  - PAIN [None]
  - PARAESTHESIA [None]
  - SKIN BURNING SENSATION [None]
